FAERS Safety Report 20355135 (Version 1)
Quarter: 2022Q1

REPORT INFORMATION
  Report Type: Spontaneous
  Country: US (occurrence: None)
  Receive Date: 20220119
  Receipt Date: 20220119
  Transmission Date: 20220423
  Serious: Yes (Hospitalization)
  Sender: FDA-Public Use
  Company Number: None

PATIENT
  Age: 31 Year
  Sex: Female

DRUGS (15)
  1. BAMLANIVIMAB\ETESEVIMAB [Suspect]
     Active Substance: BAMLANIVIMAB\ETESEVIMAB
     Indication: COVID-19
     Dosage: OTHER FREQUENCY : ONCE;?
     Route: 042
     Dates: start: 20220105, end: 20220105
  2. acetaminophen (TYLENOL) 500 mg tablet [Concomitant]
  3. ARIPiprazole (ABILIFY) 5 mg tablet [Concomitant]
  4. baclofen (LIORESAL) 10 mg tablet [Concomitant]
  5. ferrous sulfate 325 mg (65 mg iron) tablet [Concomitant]
  6. HYDROXYZINE HYDROCHLORIDE [Concomitant]
     Active Substance: HYDROXYZINE HYDROCHLORIDE
  7. lamoTRIgine (LaMICtal XR) 25 mg 24 hr tablet [Concomitant]
  8. magnesium oxide 400 mg Capsule [Concomitant]
  9. ondansetron (ZOFRAN) 4 mg tablet [Concomitant]
  10. oxyCODONE (ROXICODONE) 5 mg tablet [Concomitant]
  11. pregabalin (LYRICA) 75 mg capsule [Concomitant]
  12. propranolol (INDERAL) 40 mg tablet [Concomitant]
  13. QUEtiapine (SEROquel) 100 mg tablet [Concomitant]
  14. sertraline (ZOLOFT) 100 mg tablet [Concomitant]
  15. topiramate (TOPAMAX) 100 mg tablet [Concomitant]

REACTIONS (3)
  - Urinary tract infection [None]
  - Pyelonephritis [None]
  - Escherichia infection [None]

NARRATIVE: CASE EVENT DATE: 20220107
